FAERS Safety Report 26046237 (Version 2)
Quarter: 2025Q4

REPORT INFORMATION
  Report Type: Report from Study
  Country: KR (occurrence: KR)
  Receive Date: 20251114
  Receipt Date: 20251224
  Transmission Date: 20260117
  Serious: Yes (Hospitalization)
  Sender: BAUSCH AND LOMB
  Company Number: KR-BAUSCHBL-2025BNL001321

PATIENT
  Age: 52 Year
  Sex: Female
  Weight: 78 kg

DRUGS (12)
  1. VYZULTA [Suspect]
     Active Substance: LATANOPROSTENE BUNOD
     Indication: Open angle glaucoma
     Dosage: 1DROP BOTH EYES QD
     Route: 047
     Dates: start: 20241125
  2. DIABEX [Concomitant]
     Active Substance: METFORMIN HYDROCHLORIDE
     Indication: Diabetes mellitus
     Dosage: 1T/QD
     Route: 048
  3. K MOTIN [Concomitant]
     Indication: Prophylaxis
     Dosage: 1T/BID
     Route: 048
  4. PANTO K [Concomitant]
     Indication: Prophylaxis
     Dosage: 1T/QD
     Route: 048
  5. PREORIN [Concomitant]
     Indication: Prophylaxis
     Dosage: 1T/BID
     Route: 048
  6. QTERN (DAPAGLIFLOZIN PROPANEDIOL MONOHYDRATE;SAXAGLIPTIN) [Concomitant]
     Indication: Diabetes mellitus
     Dosage: 1T/QD; STRENGTH: 5/10 MG
     Route: 048
  7. LERCANIDIPINE HYDROCHLORIDE [Concomitant]
     Active Substance: LERCANIDIPINE HYDROCHLORIDE
     Indication: Hypertension
     Dosage: 1T/QD
     Route: 048
  8. ATORVASTATIN CALCIUM\EZETIMIBE [Concomitant]
     Active Substance: ATORVASTATIN CALCIUM\EZETIMIBE
     Indication: Hyperlipidaemia
     Dosage: 1T/QD
     Route: 048
  9. FENOFIBRATE [Concomitant]
     Active Substance: FENOFIBRATE
     Indication: Hyperlipidaemia
     Dosage: 1T/QD
     Route: 048
  10. VIGAMOX [Concomitant]
     Active Substance: MOXIFLOXACIN HYDROCHLORIDE
     Indication: Prophylaxis
     Dosage: 1DROP /LEFT EYE?6 TIMES??6TIMES A DAY
     Route: 047
     Dates: start: 20230222
  11. BROMFENAC SODIUM [Concomitant]
     Active Substance: BROMFENAC SODIUM
     Indication: Prophylaxis
     Dosage: LEFT EYE/1DROP BID
     Route: 047
     Dates: start: 20230222
  12. XALOST S [Concomitant]
     Indication: Open angle glaucoma
     Dosage: 1DROP QD /LEFT EYE
     Route: 047
     Dates: start: 20240610, end: 20241124

REACTIONS (2)
  - Pneumonia [Recovered/Resolved]
  - Conjunctival oedema [Recovering/Resolving]

NARRATIVE: CASE EVENT DATE: 20241217
